FAERS Safety Report 5314610-0 (Version None)
Quarter: 2007Q2

REPORT INFORMATION
  Report Type: 
  Country: None (occurrence: None)
  Receive Date: 20070427
  Receipt Date: 20070416
  Transmission Date: 20071010
  Serious: Yes (Disabling, Other)
  Sender: FDA-Public Use
  Company Number: DSM-2007-00085

PATIENT
  Age: 69 Year
  Sex: Female
  Weight: 56 kg

DRUGS (3)
  1. OLMESARTAN MEDOXOMIL AND HYDROCHLOROTHIZIDE [Suspect]
     Indication: HYPERTENSION
     Dosage: 20MG/12.5MG (1 IN 1 D); ORAL
     Route: 048
  2. CORDARONE [Concomitant]
  3. MARCOUMAR (PHENPROCOUMON (3MILLIGRAM, TABLET) (PHENPROCOUMON) [Concomitant]

REACTIONS (2)
  - BRADYCARDIA [None]
  - FATIGUE [None]
